FAERS Safety Report 5469359-0 (Version None)
Quarter: 2007Q3

REPORT INFORMATION
  Report Type: 
  Country: None (occurrence: None)
  Receive Date: 20070927
  Receipt Date: 20070918
  Transmission Date: 20080115
  Serious: Yes (Hospitalization, Other)
  Sender: FDA-Public Use
  Company Number: FR-ELI_LILLY_AND_COMPANY-FR200612003923

PATIENT
  Age: 79 Year
  Sex: Female
  Weight: 54.8 kg

DRUGS (5)
  1. CALCIUM WITH VITAMIN D [Concomitant]
     Indication: OSTEOPOROSIS
     Dosage: 1 D/F, UNK
     Route: 048
  2. FORTEO [Suspect]
     Indication: OSTEOPOROSIS
     Dosage: 20 UG, DAILY (1/D)
     Route: 058
     Dates: start: 20060326, end: 20061128
  3. FORTEO [Suspect]
     Dosage: 20 UG, DAILY (1/D)
     Route: 058
     Dates: start: 20061202, end: 20070613
  4. TAHOR [Concomitant]
     Indication: HYPERCHOLESTEROLAEMIA
  5. TARDYFERON [Concomitant]
     Dates: start: 20070513

REACTIONS (2)
  - OSTEOARTHRITIS [None]
  - VARICOSE VEIN OPERATION [None]
